FAERS Safety Report 4578536-2 (Version None)
Quarter: 2005Q1

REPORT INFORMATION
  Report Type: 
  Country: None (occurrence: None)
  Receive Date: 20050207
  Receipt Date: 20050207
  Transmission Date: 20050727
  Serious: Yes (Hospitalization)
  Sender: FDA-Public Use
  Company Number: None

PATIENT
  Sex: Female
  Weight: 56.246 kg

DRUGS (6)
  1. ADRIAMYCIN PFS [Suspect]
     Indication: BREAST CANCER
     Dosage: 88 MG IV Q 21 DAYS
     Route: 042
     Dates: start: 20050118
  2. COZAAR [Concomitant]
  3. LORTAB [Concomitant]
  4. MSSR [Concomitant]
  5. ARANESP [Concomitant]
  6. COMPAZINE [Concomitant]

REACTIONS (4)
  - ATRIAL FIBRILLATION [None]
  - BLOOD POTASSIUM DECREASED [None]
  - DIARRHOEA [None]
  - FEBRILE NEUTROPENIA [None]
